FAERS Safety Report 19226193 (Version 2)
Quarter: 2021Q2

REPORT INFORMATION
  Report Type: Report from Study
  Country: None (occurrence: US)
  Receive Date: 20210505
  Receipt Date: 20210507
  Transmission Date: 20210717
  Serious: Yes (Hospitalization)
  Sender: FDA-Public Use
  Company Number: US-ABBVIE-21K-163-3888762-00

PATIENT
  Age: 63 Year
  Sex: Male

DRUGS (1)
  1. HUMIRA [Suspect]
     Active Substance: ADALIMUMAB
     Indication: RHEUMATOID ARTHRITIS
     Dosage: CF
     Route: 058
     Dates: start: 20151026

REACTIONS (2)
  - Hypoaesthesia [Unknown]
  - Feeling cold [Unknown]

NARRATIVE: CASE EVENT DATE: 202104
